FAERS Safety Report 9874454 (Version 1)
Quarter: 2014Q1

REPORT INFORMATION
  Report Type: Spontaneous
  Country: US (occurrence: US)
  Receive Date: 20140206
  Receipt Date: 20140206
  Transmission Date: 20141002
  Serious: Yes (Other)
  Sender: FDA-Public Use
  Company Number: US-BIOGENIDEC-2014BI011131

PATIENT
  Sex: Female

DRUGS (10)
  1. TYSABRI [Suspect]
     Indication: MULTIPLE SCLEROSIS
     Route: 042
     Dates: start: 20090805, end: 20121022
  2. AVONEX [Concomitant]
     Indication: MULTIPLE SCLEROSIS
     Route: 030
  3. TECFIDERA [Concomitant]
  4. BUTORPHANOL [Concomitant]
  5. CYMBALTA [Concomitant]
  6. DEPAKOTE ER [Concomitant]
  7. DEPO-PROVERA [Concomitant]
  8. FIORICET [Concomitant]
  9. SEROQUEL [Concomitant]
  10. ZOLOFT [Concomitant]

REACTIONS (8)
  - Convulsion [Unknown]
  - Epilepsy [Unknown]
  - Headache [Unknown]
  - Amnesia [Unknown]
  - Obesity [Unknown]
  - Hypoaesthesia [Unknown]
  - Memory impairment [Unknown]
  - Tremor [Unknown]
